FAERS Safety Report 21543774 (Version 1)
Quarter: 2022Q4

REPORT INFORMATION
  Report Type: Spontaneous
  Country: FI (occurrence: FI)
  Receive Date: 20221102
  Receipt Date: 20221102
  Transmission Date: 20230112
  Serious: Yes (Disabling)
  Sender: FDA-Public Use
  Company Number: None

PATIENT
  Sex: Male

DRUGS (1)
  1. ESCITALOPRAM OXALATE [Suspect]
     Active Substance: ESCITALOPRAM OXALATE
     Indication: Product used for unknown indication
     Dosage: 15 MG, DAILY
     Route: 048
     Dates: start: 20140606

REACTIONS (3)
  - Premature ejaculation [Recovered/Resolved with Sequelae]
  - Male sexual dysfunction [Recovered/Resolved with Sequelae]
  - Ejaculation delayed [Recovered/Resolved with Sequelae]

NARRATIVE: CASE EVENT DATE: 20150101
